FAERS Safety Report 4809091-7 (Version None)
Quarter: 2005Q4

REPORT INFORMATION
  Report Type: 
  Country: None (occurrence: None)
  Receive Date: 20051021
  Receipt Date: 19991008
  Transmission Date: 20060501
  Serious: No
  Sender: FDA-Public Use
  Company Number: AU_991000834

PATIENT
  Age: 64 Year
  Sex: Female

DRUGS (7)
  1. ZYPREXA [Suspect]
     Dosage: 5 MG/DAY
     Dates: start: 19990101
  2. IMDUR [Concomitant]
  3. WARFARIN [Concomitant]
  4. METOPROLOL [Concomitant]
  5. TEGRETOL [Concomitant]
  6. CLONAZEPAM [Concomitant]
  7. HALOPERIDOL [Concomitant]

REACTIONS (1)
  - HAEMORRHAGE [None]
